FAERS Safety Report 8533151 (Version 5)
Quarter: 2013Q1

REPORT INFORMATION
  Report Type: Spontaneous
  Country: US (occurrence: US)
  Receive Date: 20120427
  Receipt Date: 20130308
  Transmission Date: 20140127
  Serious: Yes (Hospitalization, Congenital Anomaly, Other)
  Sender: FDA-Public Use
  Company Number: US-PFIZER INC-2012101349

PATIENT
  Sex: Male

DRUGS (15)
  1. ZOLOFT [Suspect]
     Indication: DEPRESSION
     Dosage: UNK
     Route: 064
     Dates: start: 200106
  2. ZOLOFT [Suspect]
     Dosage: UNK
     Route: 064
     Dates: start: 2003
  3. ZOLOFT [Suspect]
     Dosage: UNK
     Route: 064
     Dates: start: 200405, end: 200606
  4. MAXALT [Concomitant]
     Dosage: UNK
     Route: 064
  5. ZYPREXA [Concomitant]
     Dosage: UNK
     Route: 064
  6. OXYCODONE [Concomitant]
     Dosage: UNK
     Route: 064
  7. ALPRAZOLAM [Concomitant]
     Dosage: UNK
     Route: 064
  8. CYCLOBENZAPRINE [Concomitant]
     Dosage: UNK
     Route: 064
  9. BEXTRA [Concomitant]
     Dosage: UNK
     Route: 064
  10. CARISOPRODOL [Concomitant]
     Dosage: UNK
     Route: 064
  11. DICYCLOMINE [Concomitant]
     Dosage: UNK
     Route: 064
  12. NITROFURANTOIN [Concomitant]
     Dosage: UNK
     Route: 064
  13. WELLBUTRIN [Concomitant]
     Dosage: UNK
     Route: 064
  14. VISTARIL [Concomitant]
     Dosage: UNK
     Route: 064
  15. PRENATAL VITAMINS [Concomitant]
     Dosage: UNK
     Route: 064

REACTIONS (8)
  - Maternal exposure timing unspecified [Unknown]
  - Heart disease congenital [Unknown]
  - Fallot^s tetralogy [Unknown]
  - Ventricular septal defect [Unknown]
  - Patent ductus arteriosus [Unknown]
  - Congenital aortic atresia [Unknown]
  - Hypoplastic left heart syndrome [Unknown]
  - Atrial septal defect [Unknown]
